FAERS Safety Report 13318009 (Version 1)
Quarter: 2017Q1

REPORT INFORMATION
  Report Type: Spontaneous
  Country: US (occurrence: US)
  Receive Date: 20170310
  Receipt Date: 20170310
  Transmission Date: 20170428
  Serious: No
  Sender: FDA-Public Use
  Company Number: US-PFIZER INC-2017105818

PATIENT

DRUGS (1)
  1. ADVIL [Suspect]
     Active Substance: IBUPROFEN
     Dosage: UNK
     Dates: start: 201509

REACTIONS (4)
  - Fatigue [Unknown]
  - Nasal discomfort [Unknown]
  - Burning sensation [Unknown]
  - Feeling of body temperature change [Unknown]
